FAERS Safety Report 23889814 (Version 1)
Quarter: 2024Q2

REPORT INFORMATION
  Report Type: Spontaneous
  Country: US (occurrence: None)
  Receive Date: 20240523
  Receipt Date: 20240523
  Transmission Date: 20240716
  Serious: No
  Sender: FDA-Public Use
  Company Number: None

PATIENT
  Age: 85 Year
  Sex: Female
  Weight: 56.7 kg

DRUGS (11)
  1. LEVOFLOXACIN [Suspect]
     Active Substance: LEVOFLOXACIN
     Indication: Catheter site infection
     Dosage: FREQUENCY : DAILY;?
     Route: 048
     Dates: start: 20230409, end: 20230809
  2. METFORMIN [Concomitant]
     Active Substance: METFORMIN HYDROCHLORIDE
  3. IRON [Concomitant]
     Active Substance: IRON
  4. ESTRADIOL [Concomitant]
     Active Substance: ESTRADIOL
  5. CLOPIDOGREL [Concomitant]
     Active Substance: CLOPIDOGREL BISULFATE
  6. ISOSORBIDE [Concomitant]
     Active Substance: ISOSORBIDE
  7. PROTONIX [Concomitant]
     Active Substance: PANTOPRAZOLE SODIUM
  8. ROSUVASTATIN [Concomitant]
     Active Substance: ROSUVASTATIN
  9. MELATONIN [Concomitant]
     Active Substance: MELATONIN
  10. MAGNESIUM [Concomitant]
     Active Substance: MAGNESIUM
  11. CARDIAC PACEMAKER [Concomitant]

REACTIONS (6)
  - Dural tear [None]
  - Middle insomnia [None]
  - Gait disturbance [None]
  - Muscular weakness [None]
  - Chills [None]
  - Pain in extremity [None]
